FAERS Safety Report 9376889 (Version 5)
Quarter: 2014Q2

REPORT INFORMATION
  Report Type: Report from Study
  Country: US (occurrence: US)
  Receive Date: 20130701
  Receipt Date: 20140630
  Transmission Date: 20141212
  Serious: Yes (Hospitalization, Other)
  Sender: FDA-Public Use
  Company Number: US-ALEXION PHARMACEUTICALS INC.-A201301459

PATIENT
  Sex: 0

DRUGS (1)
  1. SOLIRIS [Suspect]
     Indication: HAEMOLYTIC URAEMIC SYNDROME
     Dosage: UNK
     Route: 042
     Dates: start: 20130604

REACTIONS (15)
  - Diabetic ketoacidosis [Recovering/Resolving]
  - Catheter placement [Unknown]
  - Pericardial effusion [Unknown]
  - Blood product transfusion [Unknown]
  - Plasmapheresis [Unknown]
  - Weight increased [Unknown]
  - Dyspnoea [Unknown]
  - Hypertension [Unknown]
  - Abdominal pain [Unknown]
  - Oedema [Unknown]
  - Burning sensation [Not Recovered/Not Resolved]
  - Fluid retention [Recovering/Resolving]
  - Swelling [Unknown]
  - Chills [Unknown]
  - Dyspepsia [Unknown]
